FAERS Safety Report 20247418 (Version 1)
Quarter: 2021Q4

REPORT INFORMATION
  Report Type: Spontaneous
  Country: US (occurrence: None)
  Receive Date: 20211229
  Receipt Date: 20211229
  Transmission Date: 20220303
  Serious: Yes (Hospitalization, Other)
  Sender: FDA-Public Use
  Company Number: US-Hikma Pharmaceuticals USA Inc.-US-H14001-21-05546

PATIENT
  Age: 58 Year
  Sex: Female

DRUGS (2)
  1. PREDNISONE [Suspect]
     Active Substance: PREDNISONE
     Indication: Granulomatosis with polyangiitis
     Dosage: UNKNOWN
     Route: 048
  2. CYTOXAN [Suspect]
     Active Substance: CYCLOPHOSPHAMIDE
     Indication: Granulomatosis with polyangiitis
     Dosage: UNKNOWN
     Route: 065

REACTIONS (5)
  - Mesenteric haemorrhage [Unknown]
  - Small intestinal haemorrhage [Unknown]
  - Abdominal abscess [Unknown]
  - Septic shock [Unknown]
  - Multiple organ dysfunction syndrome [Unknown]
